FAERS Safety Report 5058456-X (Version None)
Quarter: 2006Q2

REPORT INFORMATION
  Report Type: 
  Country: None (occurrence: None)
  Receive Date: 20060627
  Receipt Date: 20050721
  Transmission Date: 20061013
  Serious: Yes (Death)
  Sender: FDA-Public Use
  Company Number: 411845

PATIENT
  Age: 60 Year
  Sex: Male

DRUGS (1)
  1. XELODA [Suspect]
     Indication: LUNG NEOPLASM MALIGNANT
     Dosage: 1800 MG 2 PER DAY ORAL
     Route: 048
     Dates: start: 20050413, end: 20050620

REACTIONS (1)
  - LUNG ADENOCARCINOMA [None]
